FAERS Safety Report 7018434-8 (Version None)
Quarter: 2010Q3

REPORT INFORMATION
  Report Type: 
  Country: None (occurrence: None)
  Receive Date: 20100924
  Receipt Date: 20100909
  Transmission Date: 20110219
  Serious: Yes (Hospitalization)
  Sender: FDA-Public Use
  Company Number: DSA_43988_2010

PATIENT
  Age: 61 Year
  Sex: Male

DRUGS (5)
  1. DILTIAZEM HYDROCHLORIDE [Suspect]
     Indication: PRODUCT USED FOR UNKNOWN INDICATION
     Dosage: (300 MG QD ORAL)
     Route: 048
  2. PLAVIX [Suspect]
     Indication: TIBIA FRACTURE
     Dosage: (75 MG QD ORAL)
     Route: 048
     Dates: start: 20060901
  3. ADANCOR (NICORANDIL) [Suspect]
     Indication: PRODUCT USED FOR UNKNOWN INDICATION
     Dosage: (20 MG BID ORAL)
     Route: 048
     Dates: start: 20060901
  4. LOSARTAN POTASSIUM/HYDROCHLOROTHIAZIDE [Suspect]
     Indication: PRODUCT USED FOR UNKNOWN INDICATION
     Dosage: (1 DF QD ORAL)
     Route: 048
     Dates: start: 20080101
  5. PRAVASTATIN SODIUM [Suspect]
     Indication: PRODUCT USED FOR UNKNOWN INDICATION
     Dosage: (40 MG QD ORAL)
     Route: 048

REACTIONS (6)
  - ANIMAL BITE [None]
  - DEVICE INTOLERANCE [None]
  - IMPAIRED HEALING [None]
  - MULTIPLE ALLERGIES [None]
  - SKIN ULCER [None]
  - VENOUS INSUFFICIENCY [None]
